FAERS Safety Report 12330520 (Version 1)
Quarter: 2016Q2

REPORT INFORMATION
  Report Type: Spontaneous
  Country: US (occurrence: None)
  Receive Date: 20160503
  Receipt Date: 20160503
  Transmission Date: 20160815
  Serious: No
  Sender: FDA-Public Use
  Company Number: None

PATIENT
  Age: 85 Year
  Sex: Male

DRUGS (1)
  1. GLEEVEC [Suspect]
     Active Substance: IMATINIB MESYLATE
     Indication: CHRONIC MYELOID LEUKAEMIA
     Dosage: 100MG 3QD ORAL
     Route: 048
     Dates: start: 20160101

REACTIONS (5)
  - Myalgia [None]
  - Arthralgia [None]
  - Eye swelling [None]
  - Abdominal pain [None]
  - Eye discharge [None]

NARRATIVE: CASE EVENT DATE: 20160502
